FAERS Safety Report 9843465 (Version 1)
Quarter: 2013Q4

REPORT INFORMATION
  Report Type: Spontaneous
  Country: US (occurrence: None)
  Receive Date: 20131223
  Receipt Date: 20131223
  Transmission Date: 20140711
  Serious: Yes (Other)
  Sender: FDA-Public Use
  Company Number: 219374LEO

PATIENT
  Age: 77 Year
  Sex: Male

DRUGS (5)
  1. PICATO [Suspect]
     Indication: ACTINIC KERATOSIS
     Dosage: 1 IN 1 D
     Route: 061
     Dates: start: 20121019, end: 20121021
  2. TECTURNA [Concomitant]
  3. METFORMIN [Concomitant]
  4. FISH OIL [Concomitant]
  5. VITAMIN D [Concomitant]

REACTIONS (3)
  - Application site erythema [None]
  - Eye swelling [None]
  - Drug administered at inappropriate site [None]
